FAERS Safety Report 8056442-9 (Version None)
Quarter: 2012Q1

REPORT INFORMATION
  Report Type: 
  Country: None (occurrence: None)
  Receive Date: 20120119
  Receipt Date: 20120112
  Transmission Date: 20120608
  Serious: Yes (Disabling)
  Sender: FDA-Public Use
  Company Number: US-MERCK-1109USA02456

PATIENT
  Age: 34 Year
  Sex: Male

DRUGS (1)
  1. PROPECIA [Suspect]
     Indication: ANDROGENETIC ALOPECIA
     Route: 048
     Dates: start: 20020101, end: 20110501

REACTIONS (16)
  - ALOPECIA [None]
  - PREMATURE EJACULATION [None]
  - LIBIDO DECREASED [None]
  - DEPRESSION [None]
  - SEBORRHOEIC DERMATITIS [None]
  - ANXIETY [None]
  - EMOTIONAL DISTRESS [None]
  - EPIDIDYMAL DISORDER [None]
  - ERECTILE DYSFUNCTION [None]
  - INJURY [None]
  - EPIDIDYMITIS [None]
  - SEMEN VOLUME DECREASED [None]
  - DANDRUFF [None]
  - SEXUAL DYSFUNCTION [None]
  - URETHRAL STENOSIS [None]
  - PEMPHIGUS [None]
